FAERS Safety Report 6166640-7 (Version None)
Quarter: 2009Q2

REPORT INFORMATION
  Report Type: 
  Country: None (occurrence: None)
  Receive Date: 20090422
  Receipt Date: 20090407
  Transmission Date: 20091009
  Serious: Yes (Hospitalization, Disabling)
  Sender: FDA-Public Use
  Company Number: 230003K09ISR

PATIENT
  Age: 42 Year
  Sex: Male

DRUGS (10)
  1. REBIF [Suspect]
     Indication: RELAPSING-REMITTING MULTIPLE SCLEROSIS
     Dosage: 44 MCG, 3 IN 1 WEEKS, SUBCUTANEOUS;  22, 3 IN 1 WEEKS,   SUBCUTANEOUS
     Route: 058
     Dates: start: 20061205, end: 20080515
  2. REBIF [Suspect]
     Indication: RELAPSING-REMITTING MULTIPLE SCLEROSIS
     Dosage: 44 MCG, 3 IN 1 WEEKS, SUBCUTANEOUS;  22, 3 IN 1 WEEKS,   SUBCUTANEOUS
     Route: 058
     Dates: start: 20080515
  3. ENALADEX (ENALAPRIL MALEATE) [Concomitant]
  4. NORNITEN (ATENOLOL) [Concomitant]
  5. SIMVACOR (SIMVASTATIN) [Concomitant]
  6. BUFFERED ASPIRIN (ACETYLSALICYLIC ACID) [Concomitant]
  7. FUSID (FUROSEMIDE /00032601/) [Concomitant]
  8. CARDORAL (DOXAZ OS IN MESILATE) [Concomitant]
  9. PAROXETINE HCL [Concomitant]
  10. SLOW -K (POTASIUM CHLORIDE) [Concomitant]

REACTIONS (3)
  - AMPUTATION [None]
  - BONE GIANT CELL TUMOUR BENIGN [None]
  - JAW DISORDER [None]
